FAERS Safety Report 10435961 (Version 1)
Quarter: 2014Q3

REPORT INFORMATION
  Report Type: Spontaneous
  Country: US (occurrence: US)
  Receive Date: 20140908
  Receipt Date: 20140908
  Transmission Date: 20150326
  Serious: Yes (Other)
  Sender: FDA-Public Use
  Company Number: US-JNJFOC-20140901020

PATIENT
  Age: 95 Year
  Sex: Female
  Weight: 77.11 kg

DRUGS (2)
  1. LEVOFLOXACIN [Suspect]
     Active Substance: LEVOFLOXACIN
     Indication: URINARY TRACT INFECTION
     Dosage: DAILY FOR 4 DAYS
     Route: 042
     Dates: start: 20140825, end: 20140826
  2. LEVOFLOXACIN [Suspect]
     Active Substance: LEVOFLOXACIN
     Indication: URINARY TRACT INFECTION
     Dosage: DAILY FOR 4 DAYS
     Route: 048
     Dates: start: 20140827, end: 20140828

REACTIONS (6)
  - Drug hypersensitivity [Unknown]
  - Confusional state [Unknown]
  - Rash [Unknown]
  - Hallucination [Unknown]
  - Ocular hyperaemia [Unknown]
  - Cushingoid [Unknown]

NARRATIVE: CASE EVENT DATE: 20140828
